FAERS Safety Report 14140812 (Version 2)
Quarter: 2017Q4

REPORT INFORMATION
  Report Type: Report from Study
  Country: US (occurrence: US)
  Receive Date: 20171030
  Receipt Date: 20171030
  Transmission Date: 20180321
  Serious: No
  Sender: FDA-Public Use
  Company Number: PHEH2017US034457

PATIENT
  Sex: Female

DRUGS (1)
  1. GILENYA [Suspect]
     Active Substance: FINGOLIMOD HYDROCHLORIDE
     Indication: MULTIPLE SCLEROSIS
     Dosage: 0.5 MG, QD
     Route: 048
     Dates: start: 20171005, end: 20171005

REACTIONS (6)
  - Photophobia [Unknown]
  - Vision blurred [Unknown]
  - Migraine [Unknown]
  - Eye pain [Unknown]
  - Pain in extremity [Unknown]
  - Back pain [Unknown]
